FAERS Safety Report 10215725 (Version 3)
Quarter: 2014Q3

REPORT INFORMATION
  Report Type: Report from Study
  Country: GB (occurrence: None)
  Receive Date: 20140610
  Receipt Date: 20140707
  Transmission Date: 20150326
  Serious: Yes (Hospitalization)
  Sender: FDA-Public Use
  Company Number: BTG00120

PATIENT
  Age: 92 Year
  Sex: Female

DRUGS (12)
  1. SERETIDE [Concomitant]
     Active Substance: FLUTICASONE FUROATE\SALMETEROL XINAFOATE
  2. DIGIFAB [Suspect]
     Active Substance: OVINE DIGOXIN IMMUNE FAB
     Indication: TOXICITY TO VARIOUS AGENTS
     Dosage: 6 VIALS
     Dates: start: 20140425
  3. TIOTROPIUM (TIOTROPIUM) (TIOTROPIUM) [Concomitant]
     Active Substance: TIOTROPIUM
  4. MIRTAZAPINE (MIRTAZAPINE) [Concomitant]
     Active Substance: MIRTAZAPINE
  5. DONEPEZIL (DONEPEZIL) [Concomitant]
     Active Substance: DONEPEZIL
  6. DIGOXIN (DIGOXIN) [Suspect]
     Active Substance: DIGOXIN
     Indication: PRODUCT USED FOR UNKNOWN INDICATION
  7. FUROSEMIDE (FUROSEMIDE) [Concomitant]
     Active Substance: FUROSEMIDE
  8. UNIPHYLLIN (THEOPHYLLINE) [Concomitant]
  9. CALCICHEW D3 (CALCIUM CARBONATE, COLECALCIFEROL) [Concomitant]
  10. FEXOFENADINE [Concomitant]
     Active Substance: FEXOFENADINE\FEXOFENADINE HYDROCHLORIDE
  11. ASPIRIN (ACETYLSALICYLIC ACID) [Concomitant]
     Active Substance: ASPIRIN
  12. OMEPRAZOLE (OMEPRAZOLE) [Concomitant]
     Active Substance: OMEPRAZOLE

REACTIONS (7)
  - Gastrointestinal disorder [None]
  - Catheter site cellulitis [None]
  - Renal failure acute [None]
  - Malaise [None]
  - Nausea [None]
  - Toxicity to various agents [None]
  - Drug ineffective [None]
